FAERS Safety Report 11786772 (Version 1)
Quarter: 2015Q4

REPORT INFORMATION
  Report Type: Spontaneous
  Country: BE (occurrence: BE)
  Receive Date: 20151130
  Receipt Date: 20151130
  Transmission Date: 20160305
  Serious: Yes (Hospitalization)
  Sender: FDA-Public Use
  Company Number: BE-JNJFOC-20151122866

PATIENT
  Age: 47 Year
  Sex: Male

DRUGS (1)
  1. XEPLION [Suspect]
     Active Substance: PALIPERIDONE PALMITATE
     Indication: PRODUCT USED FOR UNKNOWN INDICATION
     Route: 030

REACTIONS (5)
  - Incorrect drug administration rate [Unknown]
  - Sedation [Unknown]
  - Hospitalisation [Unknown]
  - Incorrect route of drug administration [Unknown]
  - Confusional state [Unknown]

NARRATIVE: CASE EVENT DATE: 20151123
